FAERS Safety Report 4444006-5 (Version None)
Quarter: 2004Q3

REPORT INFORMATION
  Report Type: 
  Country: None (occurrence: None)
  Receive Date: 20040729
  Receipt Date: 20030522
  Transmission Date: 20050211
  Serious: Yes (Hospitalization)
  Sender: FDA-Public Use
  Company Number: USA-2003-0006654

PATIENT
  Age: 55 Year
  Sex: Male

DRUGS (9)
  1. MS CONTIN [Suspect]
     Indication: PAIN
     Dosage: 30 MG, Q8H
  2. ASPIRIN [Concomitant]
  3. LIPITOR [Concomitant]
  4. XANAX [Concomitant]
  5. PLAVIX [Concomitant]
  6. REGLAN [Concomitant]
  7. HYDROXYCHLOROTHIAZIDE [Concomitant]
  8. FOLIC ACID [Concomitant]
  9. CELEBREX [Concomitant]

REACTIONS (2)
  - OVERDOSE [None]
  - PAIN [None]
